FAERS Safety Report 7078375-7 (Version None)
Quarter: 2010Q4

REPORT INFORMATION
  Report Type: 
  Country: None (occurrence: None)
  Receive Date: 20101101
  Receipt Date: 20101101
  Transmission Date: 20110411
  Serious: Yes (Other)
  Sender: FDA-Public Use
  Company Number: None

PATIENT
  Age: 72 Year
  Sex: Female
  Weight: 49.8957 kg

DRUGS (2)
  1. LIALDA [Suspect]
     Indication: ABDOMINAL PAIN
     Dosage: 1 TAB 2 X DAILY PO
     Route: 048
     Dates: start: 20101018, end: 20101030
  2. LIALDA [Suspect]
     Indication: DIVERTICULUM
     Dosage: 1 TAB 2 X DAILY PO
     Route: 048
     Dates: start: 20101018, end: 20101030

REACTIONS (6)
  - HEADACHE [None]
  - HYPERSENSITIVITY [None]
  - NECK PAIN [None]
  - PRURITUS [None]
  - SKIN DISORDER [None]
  - SWELLING [None]
